APPROVED DRUG PRODUCT: MONISTAT 1 COMBINATION PACK
Active Ingredient: MICONAZOLE NITRATE
Strength: 2%,1.2GM
Dosage Form/Route: CREAM, INSERT;TOPICAL, VAGINAL
Application: N021308 | Product #001
Applicant: MEDTECH PRODUCTS INC
Approved: Jun 29, 2001 | RLD: Yes | RS: Yes | Type: OTC